FAERS Safety Report 9752930 (Version 2)
Quarter: 2013Q4

REPORT INFORMATION
  Report Type: Spontaneous
  Country: CN (occurrence: CN)
  Receive Date: 20131213
  Receipt Date: 20131217
  Transmission Date: 20140711
  Serious: Yes (Other)
  Sender: FDA-Public Use
  Company Number: CN-ABBVIE-13P-035-1178329-00

PATIENT
  Age: 24 Year
  Sex: Male

DRUGS (4)
  1. DEPAKINE CHRONO [Suspect]
     Indication: EPILEPSY
     Dosage: TIME TO ONSET: FEW DAYS
     Route: 048
     Dates: start: 20131104
  2. PHENOBARBITAL [Concomitant]
     Indication: PRODUCT USED FOR UNKNOWN INDICATION
     Dates: start: 2007, end: 20131209
  3. NITRAZEPAM [Concomitant]
     Indication: PRODUCT USED FOR UNKNOWN INDICATION
     Dates: start: 2007, end: 20131209
  4. CHLORPHENAMINE MALEATE [Concomitant]
     Indication: PRODUCT USED FOR UNKNOWN INDICATION
     Dates: start: 2007, end: 20131209

REACTIONS (5)
  - Gaze palsy [Recovering/Resolving]
  - Gamma-glutamyltransferase increased [Unknown]
  - Vomiting [Recovered/Resolved]
  - Headache [Recovering/Resolving]
  - Tremor [Unknown]
